FAERS Safety Report 14358841 (Version 4)
Quarter: 2018Q3

REPORT INFORMATION
  Report Type: Report from Study
  Country: US (occurrence: US)
  Receive Date: 20180105
  Receipt Date: 20180730
  Transmission Date: 20181010
  Serious: No
  Sender: FDA-Public Use
  Company Number: US-SA-2017SA267914

PATIENT
  Age: 28 Year
  Sex: Male
  Weight: 81.64 kg

DRUGS (2)
  1. DUPILUMAB [Suspect]
     Active Substance: DUPILUMAB
     Indication: DERMATITIS ATOPIC
     Dosage: 600 MG, 1X
     Route: 058
     Dates: start: 20171110, end: 20171110
  2. DUPILUMAB [Suspect]
     Active Substance: DUPILUMAB
     Dosage: 300 MG, QOW
     Route: 058
     Dates: start: 20171124

REACTIONS (7)
  - Eye pain [Not Recovered/Not Resolved]
  - Rash pustular [Not Recovered/Not Resolved]
  - Eye discharge [Not Recovered/Not Resolved]
  - Eye pruritus [Not Recovered/Not Resolved]
  - Photophobia [Not Recovered/Not Resolved]
  - Unevaluable event [Unknown]
  - Pruritus [Unknown]

NARRATIVE: CASE EVENT DATE: 2017
